FAERS Safety Report 9010663 (Version 2)
Quarter: 2013Q1

REPORT INFORMATION
  Report Type: Spontaneous
  Country: JP (occurrence: JP)
  Receive Date: 20130109
  Receipt Date: 20130201
  Transmission Date: 20140127
  Serious: No
  Sender: FDA-Public Use
  Company Number: JP-JNJFOC-20130101800

PATIENT
  Age: 4 Decade
  Sex: Male

DRUGS (3)
  1. DUROTEP MT [Suspect]
     Indication: PAIN
     Route: 062
  2. TRAMCET [Suspect]
     Indication: PAIN
     Route: 048
  3. MORPHINE SULFATE [Suspect]
     Indication: PAIN
     Route: 065

REACTIONS (3)
  - Agitation [Unknown]
  - Constipation [Unknown]
  - Inappropriate schedule of drug administration [Unknown]
